FAERS Safety Report 9358217 (Version 2)
Quarter: 2013Q3

REPORT INFORMATION
  Report Type: Spontaneous
  Country: US (occurrence: US)
  Receive Date: 20130620
  Receipt Date: 20130729
  Transmission Date: 20140515
  Serious: No
  Sender: FDA-Public Use
  Company Number: US-009507513-1306USA009273

PATIENT
  Age: 31 Year
  Sex: Female
  Weight: 86.62 kg

DRUGS (1)
  1. IMPLANON [Suspect]
     Dosage: UNK
     Route: 059
     Dates: start: 20100624, end: 20130613

REACTIONS (4)
  - Device difficult to use [Unknown]
  - Device breakage [Unknown]
  - Device dislocation [Unknown]
  - No adverse event [Unknown]
